FAERS Safety Report 4915674-6 (Version None)
Quarter: 2006Q1

REPORT INFORMATION
  Report Type: 
  Country: None (occurrence: None)
  Receive Date: 20060214
  Receipt Date: 20060123
  Transmission Date: 20060701
  Serious: No
  Sender: FDA-Public Use
  Company Number: 1989

PATIENT
  Sex: Female

DRUGS (1)
  1. AMNESTEEM [Suspect]
     Indication: ACNE
     Dosage: 20MG; QHS; 40MG, QAM, PO
     Route: 048
     Dates: start: 20060112, end: 20060121

REACTIONS (3)
  - FEAR [None]
  - NIGHTMARE [None]
  - PARANOIA [None]
